FAERS Safety Report 4848694-0 (Version None)
Quarter: 2005Q4

REPORT INFORMATION
  Report Type: 
  Country: None (occurrence: None)
  Receive Date: 20051206
  Receipt Date: 20051119
  Transmission Date: 20060501
  Serious: Yes (Other)
  Sender: FDA-Public Use
  Company Number: GB200511001846

PATIENT
  Age: 54 Year
  Sex: Male

DRUGS (1)
  1. XIGRIS [Suspect]
     Dosage: SEE IMAGE
     Route: 042
     Dates: start: 20051118

REACTIONS (1)
  - THROMBOCYTOPENIA [None]
